FAERS Safety Report 4471832-9 (Version None)
Quarter: 2004Q4

REPORT INFORMATION
  Report Type: 
  Country: None (occurrence: None)
  Receive Date: 20041007
  Receipt Date: 20040923
  Transmission Date: 20050328
  Serious: Yes (Other)
  Sender: FDA-Public Use
  Company Number: 2004234899IN

PATIENT

DRUGS (1)
  1. SOLU-MEDROL [Suspect]
     Dosage: IV
     Route: 042

REACTIONS (1)
  - HAEMORRHAGE [None]
